FAERS Safety Report 8698887 (Version 4)
Quarter: 2013Q1

REPORT INFORMATION
  Report Type: Spontaneous
  Country: US (occurrence: US)
  Receive Date: 20120802
  Receipt Date: 20130128
  Transmission Date: 20140127
  Serious: Yes (Other)
  Sender: FDA-Public Use
  Company Number: US-ROCHE-1061225

PATIENT
  Age: 15 Year
  Sex: Male
  Weight: 81.72 kg

DRUGS (1)
  1. ACCUTANE [Suspect]
     Indication: ACNE CYSTIC
     Route: 048
     Dates: start: 199811, end: 199904

REACTIONS (13)
  - Crohn^s disease [Unknown]
  - Inflammatory bowel disease [Unknown]
  - Colitis ulcerative [Unknown]
  - Anal fistula [Unknown]
  - Perirectal abscess [Unknown]
  - Dry skin [Unknown]
  - Lip dry [Unknown]
  - Myalgia [Unknown]
  - Mood altered [Unknown]
  - Acne [Unknown]
  - Blood triglycerides increased [Unknown]
  - Epistaxis [Unknown]
  - Fatigue [Unknown]
